FAERS Safety Report 5465412-6 (Version None)
Quarter: 2007Q3

REPORT INFORMATION
  Report Type: 
  Country: None (occurrence: None)
  Receive Date: 20070924
  Receipt Date: 20070920
  Transmission Date: 20080115
  Serious: Yes (Other)
  Sender: FDA-Public Use
  Company Number: JP-BAYER-200715393GDS

PATIENT
  Age: 24 Hour
  Weight: 1.069 kg

DRUGS (1)
  1. BUFFERIN [Suspect]
     Indication: ANTIPHOSPHOLIPID SYNDROME
     Route: 064

REACTIONS (6)
  - ANTIPHOSPHOLIPID ANTIBODIES POSITIVE [None]
  - CAESAREAN SECTION [None]
  - DRUG EXPOSURE DURING PREGNANCY [None]
  - PREMATURE BABY [None]
  - PREMATURE SEPARATION OF PLACENTA [None]
  - PROTEIN S DECREASED [None]
